FAERS Safety Report 11808171 (Version 2)
Quarter: 2016Q1

REPORT INFORMATION
  Report Type: Spontaneous
  Country: US (occurrence: US)
  Receive Date: 20151207
  Receipt Date: 20160126
  Transmission Date: 20160525
  Serious: No
  Sender: FDA-Public Use
  Company Number: GXBR2015US002600

PATIENT

DRUGS (1)
  1. ROCURONIUM BROMIDE. [Suspect]
     Active Substance: ROCURONIUM BROMIDE
     Indication: ANAESTHETIC PREMEDICATION
     Dosage: 50 MG, UNK
     Route: 065

REACTIONS (1)
  - Drug ineffective [Recovered/Resolved]
